FAERS Safety Report 7048451-3 (Version None)
Quarter: 2010Q4

REPORT INFORMATION
  Report Type: 
  Country: None (occurrence: None)
  Receive Date: 20101015
  Receipt Date: 20101015
  Transmission Date: 20110411
  Serious: Yes (Other)
  Sender: FDA-Public Use
  Company Number: None

PATIENT
  Age: 60 Year
  Sex: Female
  Weight: 68.0396 kg

DRUGS (2)
  1. EQUATE HAIR REGROWTH TREATMENT MINOXIDIL 5% CONTRACT PHARMACEUTICALS L [Suspect]
     Indication: ALOPECIA
     Dosage: 1ML EVERY OTHER DAY TOP
     Route: 061
  2. EQUATE HAIR REGROWTH TREATMENT MINOXIDIL 5% CONTRACT PHARMACEUTICALS L [Suspect]
     Indication: ALOPECIA
     Dosage: 1ML EVERY OTHER DAY TOP
     Route: 061

REACTIONS (6)
  - ANXIETY [None]
  - BLOOD PRESSURE DIASTOLIC INCREASED [None]
  - BURNING SENSATION [None]
  - MALAISE [None]
  - SENSORY DISTURBANCE [None]
  - TINNITUS [None]
